FAERS Safety Report 24940333 (Version 1)
Quarter: 2025Q1

REPORT INFORMATION
  Report Type: Spontaneous
  Country: US (occurrence: US)
  Receive Date: 20250207
  Receipt Date: 20250207
  Transmission Date: 20250408
  Serious: Yes (Other)
  Sender: TOLMAR
  Company Number: US-TOLMAR, INC.-25US056348

PATIENT
  Age: 74 Year
  Sex: Male

DRUGS (2)
  1. LEUPROLIDE ACETATE [Suspect]
     Active Substance: LEUPROLIDE ACETATE
     Indication: Prostate cancer
  2. HEPARIN [Suspect]
     Active Substance: HEPARIN SODIUM
     Indication: Thrombosis prophylaxis
     Dosage: 5000 UNIT, Q 8 HR (DRIP)
     Route: 058

REACTIONS (8)
  - Atrial fibrillation [Recovered/Resolved]
  - Thrombosis [Recovering/Resolving]
  - Deep vein thrombosis [Recovering/Resolving]
  - Platelet count decreased [Recovering/Resolving]
  - Atrioventricular block complete [Recovering/Resolving]
  - Atrial thrombosis [Recovering/Resolving]
  - Cerebral ischaemia [Recovering/Resolving]
  - Cardiovascular deconditioning [Recovering/Resolving]
